FAERS Safety Report 6863075-6 (Version None)
Quarter: 2010Q3

REPORT INFORMATION
  Report Type: 
  Country: None (occurrence: None)
  Receive Date: 20100721
  Receipt Date: 20100709
  Transmission Date: 20110219
  Serious: Yes (Death, Hospitalization)
  Sender: FDA-Public Use
  Company Number: US-JNJFOC-20100704288

PATIENT
  Age: 3 Decade
  Sex: Female

DRUGS (1)
  1. INTELENCE [Suspect]
     Indication: HIV INFECTION
     Route: 048

REACTIONS (3)
  - DEATH [None]
  - RASH [None]
  - STEVENS-JOHNSON SYNDROME [None]
